FAERS Safety Report 14220969 (Version 3)
Quarter: 2017Q4

REPORT INFORMATION
  Report Type: Spontaneous
  Country: CA (occurrence: CA)
  Receive Date: 20171124
  Receipt Date: 20171218
  Transmission Date: 20180321
  Serious: Yes (Other)
  Sender: FDA-Public Use
  Company Number: CA-PFIZER INC-2017249377

PATIENT
  Age: 63 Year
  Sex: Female

DRUGS (15)
  1. TRAMADOL. [Concomitant]
     Active Substance: TRAMADOL
     Dosage: 50 MG (1 TABLET ), 4X/DAY
  2. REACTIN [Concomitant]
     Active Substance: DICLOFENAC SODIUM
     Dosage: UNK UNK, DAILY
  3. EXEMESTANE. [Concomitant]
     Active Substance: EXEMESTANE
  4. LETROZOLE. [Concomitant]
     Active Substance: LETROZOLE
     Dosage: UNK
  5. DAILYVIT [Concomitant]
     Dosage: UNK
  6. IBRANCE [Suspect]
     Active Substance: PALBOCICLIB
     Dosage: 100 MG, CYCLIC (1 TAB DAILY FOR 3 WEEKS. 1 WEEK OFF)
     Route: 048
     Dates: start: 20170605
  7. CITALOPRAM [Concomitant]
     Active Substance: CITALOPRAM HYDROBROMIDE
     Dosage: 20 MG, 2X/DAY
  8. ATROVENT [Concomitant]
     Active Substance: IPRATROPIUM BROMIDE
     Dosage: 20 UG, 3X/DAY (2 PUFFS)
  9. VITAMIN E AND C [Concomitant]
     Dosage: UNK UNK, DAILY
  10. SYMBICORT [Concomitant]
     Active Substance: BUDESONIDE\FORMOTEROL FUMARATE DIHYDRATE
     Dosage: 200 UG, 2X/DAY (2 PUFFS)
  11. KETOROLAC [Concomitant]
     Active Substance: KETOROLAC\KETOROLAC TROMETHAMINE
     Dosage: 10 MG, CYCLIC (EVERY 8 HOURS)
  12. DEXAMETHASONE. [Concomitant]
     Active Substance: DEXAMETHASONE
     Dosage: 4 MG, DAILY
  13. IBRANCE [Suspect]
     Active Substance: PALBOCICLIB
     Dosage: 75 MG, CYCLIC (DAILY 3/4 WEEKS)
  14. IBRANCE [Suspect]
     Active Substance: PALBOCICLIB
     Indication: BREAST CANCER METASTATIC
     Dosage: 125 MG, CYCLIC (FOR 21 DAYS ON, 7 DAYS OFF)
     Route: 048
     Dates: start: 20170315, end: 2017
  15. CALCITRATE [Concomitant]
     Active Substance: CALCIUM CITRATE
     Dosage: UNK UNK, DAILY

REACTIONS (5)
  - Laboratory test abnormal [Unknown]
  - Clavicle fracture [Unknown]
  - Neoplasm progression [Unknown]
  - Neutropenia [Unknown]
  - Off label use [Unknown]

NARRATIVE: CASE EVENT DATE: 20170526
